FAERS Safety Report 6143336-9 (Version None)
Quarter: 2009Q2

REPORT INFORMATION
  Report Type: 
  Country: None (occurrence: None)
  Receive Date: 20090403
  Receipt Date: 20090327
  Transmission Date: 20091009
  Serious: Yes (Other)
  Sender: FDA-Public Use
  Company Number: B0567239A

PATIENT
  Sex: Female

DRUGS (6)
  1. SERETIDE [Suspect]
     Indication: CHRONIC OBSTRUCTIVE PULMONARY DISEASE
     Dosage: 2PUFF TWICE PER DAY
     Route: 055
  2. VENTOLIN [Suspect]
     Indication: CHRONIC OBSTRUCTIVE PULMONARY DISEASE
     Dosage: 100MCG AS REQUIRED
     Route: 055
  3. BENDROFLUMETHIAZIDE [Suspect]
     Indication: HYPERTENSION
     Route: 065
  4. ATACAND [Suspect]
     Indication: HYPERTENSION
     Route: 065
     Dates: start: 20070101
  5. DICLOFENAC [Suspect]
     Indication: ARTHRITIS
     Route: 065
     Dates: start: 20030101
  6. LEVOTHYROXINE SODIUM [Suspect]
     Route: 065

REACTIONS (2)
  - HYPOTHYROIDISM [None]
  - LOWER RESPIRATORY TRACT INFECTION [None]
